FAERS Safety Report 6627069-8 (Version None)
Quarter: 2010Q1

REPORT INFORMATION
  Report Type: 
  Country: None (occurrence: None)
  Receive Date: 20100311
  Receipt Date: 20090708
  Transmission Date: 20100710
  Serious: No
  Sender: FDA-Public Use
  Company Number: A0795982A

PATIENT
  Age: 39 Year
  Sex: Male

DRUGS (1)
  1. NICORETTE [Suspect]
     Dates: start: 20090708, end: 20090708

REACTIONS (6)
  - DIZZINESS [None]
  - DYSPHAGIA [None]
  - MALAISE [None]
  - NAUSEA [None]
  - ORAL DISCOMFORT [None]
  - THROAT TIGHTNESS [None]
